FAERS Safety Report 20880368 (Version 1)
Quarter: 2022Q2

REPORT INFORMATION
  Report Type: Spontaneous
  Country: CN (occurrence: CN)
  Receive Date: 20220526
  Receipt Date: 20220526
  Transmission Date: 20220721
  Serious: Yes (Hospitalization)
  Sender: FDA-Public Use
  Company Number: CN-PFIZER INC-202200757054

PATIENT
  Age: 49 Year
  Sex: Female
  Weight: 70 kg

DRUGS (4)
  1. PREGABALIN [Suspect]
     Active Substance: PREGABALIN
     Indication: Thyroid cancer
     Dosage: 75 MG, 2X/DAY
     Route: 048
     Dates: start: 20211229, end: 20220424
  2. RIVAROXABAN [Suspect]
     Active Substance: RIVAROXABAN
     Indication: Venous thrombosis limb
     Dosage: 20 MG, 1X/DAY
     Route: 048
     Dates: start: 20220214, end: 20220424
  3. LENVIMA [Suspect]
     Active Substance: LENVATINIB
     Indication: Thyroid cancer
     Dosage: 8 MG, 1X/DAY
     Route: 048
     Dates: start: 20210601, end: 20220424
  4. NAPROXEN [Suspect]
     Active Substance: NAPROXEN
     Indication: Thyroid cancer
     Dosage: 0.5 G, 1X/DAY
     Route: 048
     Dates: start: 20220406, end: 20220424

REACTIONS (1)
  - Blood bilirubin increased [Recovered/Resolved]

NARRATIVE: CASE EVENT DATE: 20220424
